FAERS Safety Report 5953311-2 (Version None)
Quarter: 2008Q4

REPORT INFORMATION
  Report Type: 
  Country: None (occurrence: None)
  Receive Date: 20081114
  Receipt Date: 20081106
  Transmission Date: 20090506
  Serious: Yes (Life-Threatening, Hospitalization)
  Sender: FDA-Public Use
  Company Number: DE-PURDUE-DEU_2008_0004732

PATIENT
  Age: 15 Year
  Sex: Female

DRUGS (2)
  1. MORPHINE [Suspect]
     Indication: DRUG ABUSE
     Dosage: UNK, SEE TEXT
     Route: 048
     Dates: start: 20081001
  2. HYPNOTICS AND SEDATIVES [Suspect]
     Indication: DRUG ABUSE
     Route: 065

REACTIONS (7)
  - APNOEA [None]
  - DRUG ABUSE [None]
  - HEART RATE DECREASED [None]
  - LOSS OF CONSCIOUSNESS [None]
  - MULTIPLE DRUG OVERDOSE [None]
  - RENAL INJURY [None]
  - VOMITING [None]
